FAERS Safety Report 9779600 (Version 1)
Quarter: 2013Q4

REPORT INFORMATION
  Report Type: Spontaneous
  Country: US (occurrence: US)
  Receive Date: 20131223
  Receipt Date: 20131223
  Transmission Date: 20140711
  Serious: Yes (Other)
  Sender: FDA-Public Use
  Company Number: US-PFIZER INC-2013365088

PATIENT
  Age: 73 Year
  Sex: Female
  Weight: 89.8 kg

DRUGS (5)
  1. XANAX [Suspect]
     Dosage: UNK
  2. VERAPAMIL HYDROCHLORIDE [Suspect]
     Indication: HYPERTENSION
     Dosage: 180 MG, 1X/DAY
     Dates: start: 2012
  3. VERAPAMIL HYDROCHLORIDE [Suspect]
     Indication: HYPERTENSION
     Dosage: 180 MG, 1X/DAY
     Dates: start: 201311
  4. HYZAAR [Suspect]
     Indication: HYPERTENSION
     Dosage: 25 MG OF HYDROCHLOROTHIAZIDE/100 MG OF LOSARTAN POTASSIUM, 1X/DAY
  5. ATENOLOL [Suspect]
     Indication: HYPERTENSION
     Dosage: 25 MG, 1X/DAY

REACTIONS (5)
  - Atrial fibrillation [Unknown]
  - Erythema [Unknown]
  - Flatulence [Unknown]
  - Drug intolerance [Unknown]
  - Drug ineffective [Unknown]
